FAERS Safety Report 21747322 (Version 1)
Quarter: 2022Q4

REPORT INFORMATION
  Report Type: Report from Study
  Country: UG (occurrence: UG)
  Receive Date: 20221219
  Receipt Date: 20221219
  Transmission Date: 20230113
  Serious: Yes (Congenital Anomaly)
  Sender: FDA-Public Use
  Company Number: UG-MYLANLABS-2022M1140522

PATIENT
  Sex: Male
  Weight: 2.9 kg

DRUGS (1)
  1. DOLUTEGRAVIR\LAMIVUDINE\TENOFOVIR DISOPROXIL FUMARATE [Suspect]
     Active Substance: DOLUTEGRAVIR\LAMIVUDINE\TENOFOVIR DISOPROXIL FUMARATE
     Indication: Product used for unknown indication
     Dosage: UNK, 650 TOTAL DAILY DOSE
     Route: 065

REACTIONS (2)
  - Umbilical hernia [Unknown]
  - Foetal exposure during pregnancy [Unknown]
